FAERS Safety Report 7170325-8 (Version None)
Quarter: 2010Q4

REPORT INFORMATION
  Report Type: 
  Country: None (occurrence: None)
  Receive Date: 20101217
  Receipt Date: 20101215
  Transmission Date: 20110411
  Serious: Yes (Death, Hospitalization)
  Sender: FDA-Public Use
  Company Number: TH-ROCHE-727725

PATIENT
  Age: 81 Year
  Sex: Female

DRUGS (15)
  1. MIRCERA [Suspect]
     Route: 058
     Dates: start: 20091019, end: 20091204
  2. MIRCERA [Suspect]
     Route: 058
     Dates: start: 20091204, end: 20100504
  3. MIRCERA [Suspect]
     Route: 058
     Dates: start: 20100504, end: 20100805
  4. MIRCERA [Suspect]
     Route: 058
     Dates: start: 20100805, end: 20100822
  5. RECORMON [Suspect]
     Route: 065
     Dates: start: 20100902, end: 20100913
  6. BETALOC [Concomitant]
  7. ZANIDIP [Concomitant]
  8. HYDERGINE [Concomitant]
  9. VYTORIN [Concomitant]
     Dosage: VYTORIN 10/40
  10. MICARDIS [Concomitant]
  11. CHALKCAP [Concomitant]
  12. KIDMIN [Concomitant]
     Dosage: 200 ML, HEMODIALYSIS
  13. FOLIC ACID [Concomitant]
  14. SODA MINT [Concomitant]
  15. MEDICPLEX [Concomitant]

REACTIONS (2)
  - APLASIA PURE RED CELL [None]
  - MYOCARDIAL INFARCTION [None]
